FAERS Safety Report 8459239-0 (Version None)
Quarter: 2012Q2

REPORT INFORMATION
  Report Type: 
  Country: None (occurrence: None)
  Receive Date: 20120622
  Receipt Date: 20120618
  Transmission Date: 20120825
  Serious: No
  Sender: FDA-Public Use
  Company Number: US-PFIZER INC-2012147020

PATIENT
  Sex: Male

DRUGS (3)
  1. SYNTHROID [Concomitant]
     Dosage: UNK
  2. ACTONEL [Concomitant]
     Dosage: UNK
  3. IBUPROFEN (ADVIL) [Suspect]
     Indication: ARTHROPATHY
     Dosage: 200 MG, AS NEEDED
     Route: 048
     Dates: start: 20111101, end: 20120615

REACTIONS (2)
  - OROPHARYNGEAL PAIN [None]
  - SWELLING [None]
